FAERS Safety Report 9908618 (Version 1)
Quarter: 2014Q1

REPORT INFORMATION
  Report Type: Report from Study
  Country: US (occurrence: US)
  Receive Date: 20140219
  Receipt Date: 20140219
  Transmission Date: 20141002
  Serious: Yes (Hospitalization)
  Sender: FDA-Public Use
  Company Number: US-ROCHE-1321507

PATIENT
  Age: 57 Year
  Sex: Female

DRUGS (6)
  1. AVASTIN [Suspect]
     Indication: RADIATION NECROSIS
     Route: 065
  2. AVASTIN [Suspect]
     Indication: METASTASES TO CENTRAL NERVOUS SYSTEM
  3. HERCEPTIN [Suspect]
     Indication: BREAST CANCER
     Route: 065
  4. HERCEPTIN [Suspect]
     Indication: RADIATION NECROSIS
  5. TYKERB [Concomitant]
  6. DEXAMETHASONE [Concomitant]
     Route: 065
     Dates: end: 20120223

REACTIONS (16)
  - Disability [Unknown]
  - Off label use [Unknown]
  - Drug hypersensitivity [Unknown]
  - Cushingoid [Unknown]
  - Neurological decompensation [Unknown]
  - Gait disturbance [Unknown]
  - Arthralgia [Unknown]
  - Eye movement disorder [Unknown]
  - Diplopia [Unknown]
  - Eyelid ptosis [Unknown]
  - Muscular weakness [Unknown]
  - Dysstasia [Unknown]
  - Pruritus [Unknown]
  - Hypersensitivity [Unknown]
  - Oedema peripheral [Unknown]
  - Muscular weakness [Unknown]
